FAERS Safety Report 5328237-8 (Version None)
Quarter: 2007Q2

REPORT INFORMATION
  Report Type: 
  Country: None (occurrence: None)
  Receive Date: 20070515
  Receipt Date: 20070502
  Transmission Date: 20071010
  Serious: Yes (Hospitalization)
  Sender: FDA-Public Use
  Company Number: 2007BI009498

PATIENT
  Age: 64 Year
  Sex: Female

DRUGS (1)
  1. NATALIZUMAB [Suspect]
     Indication: MULTIPLE SCLEROSIS
     Dosage: 300 MG;QM;IV
     Route: 042
     Dates: start: 20070201

REACTIONS (5)
  - CONDITION AGGRAVATED [None]
  - FALL [None]
  - FEELING ABNORMAL [None]
  - MULTIPLE SCLEROSIS [None]
  - TRIGEMINAL NEURALGIA [None]
